FAERS Safety Report 12960222 (Version 1)
Quarter: 2016Q4

REPORT INFORMATION
  Report Type: Spontaneous
  Country: BR (occurrence: BR)
  Receive Date: 20161121
  Receipt Date: 20161121
  Transmission Date: 20170207
  Serious: Yes (Other)
  Sender: FDA-Public Use
  Company Number: BR-NOVOPROD-519429

PATIENT
  Sex: Female

DRUGS (1)
  1. VICTOZA [Suspect]
     Active Substance: LIRAGLUTIDE
     Indication: INSULIN RESISTANCE
     Dosage: UNK
     Route: 065

REACTIONS (4)
  - Drug effect incomplete [Unknown]
  - Product use issue [Unknown]
  - Foot fracture [Unknown]
  - Hypoglycaemia [Unknown]
